FAERS Safety Report 9433245 (Version 1)
Quarter: 2013Q3

REPORT INFORMATION
  Report Type: Spontaneous
  Country: FR (occurrence: FR)
  Receive Date: 20130731
  Receipt Date: 20130731
  Transmission Date: 20140515
  Serious: Yes (Hospitalization)
  Sender: FDA-Public Use
  Company Number: FR-GLAXOSMITHKLINE-B0909585A

PATIENT
  Age: 71 Year
  Sex: Male

DRUGS (8)
  1. DEROXAT [Suspect]
     Indication: PRODUCT USED FOR UNKNOWN INDICATION
     Dosage: 10MG PER DAY
     Route: 048
  2. RISPERDAL [Suspect]
     Indication: PERSECUTORY DELUSION
     Dosage: 1UNIT TWICE PER DAY
     Route: 048
  3. PARKINANE LP [Suspect]
     Indication: PRODUCT USED FOR UNKNOWN INDICATION
     Dosage: 5MG PER DAY
     Route: 048
  4. DAFLON [Concomitant]
     Dosage: 500MG TWICE PER DAY
     Route: 048
  5. DEPAMIDE [Concomitant]
     Dosage: 900MG PER DAY
     Route: 048
  6. AERIUS [Concomitant]
     Dosage: 1UNIT PER DAY
     Route: 048
  7. LASILIX FAIBLE [Concomitant]
     Dosage: 20MG PER DAY
     Route: 048
  8. AUGMENTIN (ORAL) [Concomitant]
     Dosage: 1UNIT THREE TIMES PER DAY
     Route: 048
     Dates: start: 20130701, end: 20130709

REACTIONS (5)
  - Intestinal obstruction [Recovered/Resolved]
  - Faecaloma [Recovered/Resolved]
  - Ill-defined disorder [Unknown]
  - Abdominal distension [Unknown]
  - Abdominal distension [Not Recovered/Not Resolved]
